FAERS Safety Report 4833364-5 (Version None)
Quarter: 2005Q4

REPORT INFORMATION
  Report Type: 
  Country: None (occurrence: None)
  Receive Date: 20051118
  Receipt Date: 20051101
  Transmission Date: 20060501
  Serious: Yes (Hospitalization)
  Sender: FDA-Public Use
  Company Number: 20052631

PATIENT
  Sex: Male

DRUGS (1)
  1. LIORESAL [Suspect]
     Indication: MUSCLE SPASTICITY
     Dosage: MCG   DAILY INTRATHECAL
     Route: 037

REACTIONS (6)
  - CIRCUMSTANCE OR INFORMATION CAPABLE OF LEADING TO MEDICATION ERROR [None]
  - CONVULSION [None]
  - DRUG WITHDRAWAL SYNDROME [None]
  - HYPOTHERMIA [None]
  - PHARMACEUTICAL PRODUCT COMPLAINT [None]
  - SPINAL CORD INJURY [None]
